FAERS Safety Report 23597089 (Version 2)
Quarter: 2024Q1

REPORT INFORMATION
  Report Type: Spontaneous
  Country: CR (occurrence: CR)
  Receive Date: 20240305
  Receipt Date: 20240312
  Transmission Date: 20240409
  Serious: Yes (Other)
  Sender: FDA-Public Use
  Company Number: CR-002147023-NVSC2023CR256862

PATIENT
  Age: 61 Year
  Sex: Female
  Weight: 50.1 kg

DRUGS (5)
  1. KISQALI [Suspect]
     Active Substance: RIBOCICLIB
     Indication: Breast cancer
     Dosage: 600 MG, QD
     Route: 048
     Dates: start: 20221101
  2. KISQALI [Suspect]
     Active Substance: RIBOCICLIB
     Dosage: 600 MG, QD
     Route: 048
     Dates: start: 20221201
  3. ZOLEDRONIC ACID [Suspect]
     Active Substance: ZOLEDRONIC ACID
     Indication: Product used for unknown indication
     Dosage: UNK
     Route: 065
  4. ZOMETA [Suspect]
     Active Substance: ZOLEDRONIC ACID
     Indication: Product used for unknown indication
     Dosage: UNK
     Route: 065
  5. ARIMIDEX [Concomitant]
     Active Substance: ANASTROZOLE
     Indication: Product used for unknown indication
     Dosage: UNK
     Route: 065

REACTIONS (42)
  - Liver injury [Unknown]
  - Spinal column injury [Unknown]
  - Metastasis [Not Recovered/Not Resolved]
  - Metastases to bone [Unknown]
  - Metastases to liver [Unknown]
  - Breast cancer [Unknown]
  - Malignant neoplasm progression [Unknown]
  - Hypersensitivity [Unknown]
  - Skin irritation [Not Recovered/Not Resolved]
  - Pruritus [Recovering/Resolving]
  - Skin burning sensation [Unknown]
  - Bone pain [Unknown]
  - Alopecia [Not Recovered/Not Resolved]
  - Skin papilloma [Unknown]
  - Pain in extremity [Unknown]
  - Fatigue [Not Recovered/Not Resolved]
  - Eating disorder [Unknown]
  - Pain [Not Recovered/Not Resolved]
  - Photosensitivity reaction [Unknown]
  - Thermal burn [Recovering/Resolving]
  - Dry skin [Not Recovered/Not Resolved]
  - Hypertension [Not Recovered/Not Resolved]
  - Hepatic lesion [Unknown]
  - Somnolence [Not Recovered/Not Resolved]
  - Nasopharyngitis [Unknown]
  - Tooth fracture [Unknown]
  - Sensitive skin [Not Recovered/Not Resolved]
  - Cholelithiasis [Unknown]
  - Red blood cell count decreased [Unknown]
  - Blood creatinine increased [Unknown]
  - White blood cell count decreased [Unknown]
  - Renal atrophy [Unknown]
  - Haematocrit decreased [Unknown]
  - Lymphadenopathy [Unknown]
  - Discomfort [Unknown]
  - Mean cell haemoglobin increased [Unknown]
  - Spinal fracture [Unknown]
  - Mean platelet volume decreased [Unknown]
  - Blood urea increased [Unknown]
  - Eosinophil count increased [Unknown]
  - Fatigue [Not Recovered/Not Resolved]
  - Nasopharyngitis [Not Recovered/Not Resolved]

NARRATIVE: CASE EVENT DATE: 20221201
